FAERS Safety Report 16812600 (Version 2)
Quarter: 2019Q3

REPORT INFORMATION
  Report Type: Spontaneous
  Country: US (occurrence: US)
  Receive Date: 20190916
  Receipt Date: 20190918
  Transmission Date: 20191005
  Serious: Yes (Other)
  Sender: FDA-Public Use
  Company Number: US-JNJFOC-20190903736

PATIENT
  Age: 80 Year
  Sex: Female
  Weight: 71.28 kg

DRUGS (9)
  1. CLOPIDOGREL [Concomitant]
     Active Substance: CLOPIDOGREL BISULFATE
  2. XARELTO [Suspect]
     Active Substance: RIVAROXABAN
     Indication: CEREBROVASCULAR ACCIDENT PROPHYLAXIS
  3. PRAVASTATIN. [Concomitant]
     Active Substance: PRAVASTATIN
  4. VITAMIN D                          /00107901/ [Concomitant]
     Active Substance: ERGOCALCIFEROL
  5. XARELTO [Suspect]
     Active Substance: RIVAROXABAN
     Indication: ATRIAL FIBRILLATION
     Route: 048
     Dates: start: 20190520, end: 20190520
  6. ATENOLOL. [Concomitant]
     Active Substance: ATENOLOL
  7. SPIRONOLACTONE W/HYDROCHLOROTHIAZIDE [Concomitant]
     Active Substance: HYDROCHLOROTHIAZIDE\SPIRONOLACTONE
  8. VALSARTAN. [Concomitant]
     Active Substance: VALSARTAN
  9. ASPRIN [Concomitant]
     Active Substance: ASPIRIN

REACTIONS (3)
  - Loss of consciousness [Recovered/Resolved]
  - Off label use [Unknown]
  - Underdose [Unknown]

NARRATIVE: CASE EVENT DATE: 20190520
